FAERS Safety Report 22641966 (Version 1)
Quarter: 2023Q2

REPORT INFORMATION
  Report Type: Spontaneous
  Country: CN (occurrence: CN)
  Receive Date: 20230626
  Receipt Date: 20230626
  Transmission Date: 20230721
  Serious: Yes (Death, Other)
  Sender: FDA-Public Use
  Company Number: CN-GSK-CN2023GSK088435

PATIENT

DRUGS (7)
  1. LAMIVUDINE [Suspect]
     Active Substance: LAMIVUDINE
     Indication: HIV infection
     Dosage: UNK
     Dates: start: 20100115, end: 20140819
  2. ZIDOVUDINE [Suspect]
     Active Substance: ZIDOVUDINE
     Indication: HIV infection
     Dosage: UNK
     Dates: start: 20041025, end: 20100115
  3. ZIDOVUDINE [Suspect]
     Active Substance: ZIDOVUDINE
     Dosage: UNK
     Dates: start: 20140819
  4. TENOFOVIR DISOPROXIL FUMARATE [Suspect]
     Active Substance: TENOFOVIR DISOPROXIL FUMARATE
     Indication: HIV infection
     Dosage: UNK
     Dates: start: 20100115
  5. NEVIRAPINE [Suspect]
     Active Substance: NEVIRAPINE
     Indication: HIV infection
     Dosage: UNK
     Dates: start: 20041025, end: 20100115
  6. DIDANOSINE [Suspect]
     Active Substance: DIDANOSINE
     Indication: HIV infection
     Dosage: UNK
     Dates: start: 20041025, end: 20100115
  7. LOPINAVIR\RITONAVIR [Suspect]
     Active Substance: LOPINAVIR\RITONAVIR
     Indication: HIV infection
     Dosage: UNK
     Dates: start: 20100115

REACTIONS (9)
  - Pneumocystis jirovecii pneumonia [Fatal]
  - Pathogen resistance [Unknown]
  - Herpes zoster [Unknown]
  - Erythema [Unknown]
  - Vision blurred [Unknown]
  - Dyspnoea [Unknown]
  - Virologic failure [Unknown]
  - Drug resistance [Unknown]
  - Treatment failure [Unknown]
